FAERS Safety Report 21740829 (Version 1)
Quarter: 2022Q4

REPORT INFORMATION
  Report Type: Spontaneous
  Country: PL (occurrence: PL)
  Receive Date: 20221216
  Receipt Date: 20221216
  Transmission Date: 20230112
  Serious: Yes (Other)
  Sender: FDA-Public Use
  Company Number: ALC2022PL005597

PATIENT

DRUGS (1)
  1. ATROPINE [Suspect]
     Active Substance: ATROPINE
     Indication: Strabismus
     Dosage: 2X 1 DROP
     Route: 047
     Dates: start: 20181204, end: 20181210

REACTIONS (3)
  - Conjunctival hyperaemia [Recovering/Resolving]
  - Eye pruritus [Recovering/Resolving]
  - Conjunctivitis [Recovering/Resolving]
